FAERS Safety Report 16105242 (Version 1)
Quarter: 2019Q1

REPORT INFORMATION
  Report Type: Report from Study
  Country: US (occurrence: US)
  Receive Date: 20190322
  Receipt Date: 20190322
  Transmission Date: 20190418
  Serious: Yes (Death)
  Sender: FDA-Public Use
  Company Number: US-009507513-1903USA009104

PATIENT

DRUGS (2)
  1. TEMODAR [Suspect]
     Active Substance: TEMOZOLOMIDE
     Indication: NON-SMALL CELL LUNG CANCER
     Dosage: ON DAYS 1-7 OF 21 DAY CYCLE
     Route: 048
  2. OLAPARIB. [Suspect]
     Active Substance: OLAPARIB
     Indication: NON-SMALL CELL LUNG CANCER
     Dosage: ON DAYS 1-7 OF 21 DAY CYCLES
     Route: 048

REACTIONS (2)
  - Pneumonia [Fatal]
  - Neutropenia [Fatal]
